FAERS Safety Report 6573619-X (Version None)
Quarter: 2010Q1

REPORT INFORMATION
  Report Type: 
  Country: None (occurrence: None)
  Receive Date: 20100204
  Receipt Date: 20100204
  Transmission Date: 20100710
  Serious: Yes (Hospitalization)
  Sender: FDA-Public Use
  Company Number: None

PATIENT
  Age: 93 Year
  Sex: Male
  Weight: 81.6475 kg

DRUGS (1)
  1. FUROSEMIDE [Suspect]
     Indication: CARDIAC FAILURE CONGESTIVE
     Dosage: 20MG DQ PO
     Route: 048
     Dates: start: 20100111, end: 20100131

REACTIONS (3)
  - DYSPNOEA [None]
  - PRODUCT MEASURED POTENCY ISSUE [None]
  - URINE OUTPUT DECREASED [None]
